FAERS Safety Report 12832873 (Version 1)
Quarter: 2016Q4

REPORT INFORMATION
  Report Type: Spontaneous
  Country: US (occurrence: US)
  Receive Date: 20161010
  Receipt Date: 20161010
  Transmission Date: 20170207
  Serious: No
  Sender: FDA-Public Use
  Company Number: US-BAXALTA-2016BLT007133

PATIENT
  Sex: Female
  Weight: 68.9 kg

DRUGS (1)
  1. HYQVIA [Suspect]
     Active Substance: HUMAN IMMUNOGLOBULIN G\HYALURONIDASE RECOMBINANT HUMAN
     Indication: IMMUNODEFICIENCY COMMON VARIABLE
     Dosage: 42.5 G, EVERY 4 WK
     Route: 058
     Dates: start: 20151111, end: 20160825

REACTIONS (1)
  - Infusion site extravasation [Unknown]

NARRATIVE: CASE EVENT DATE: 2016
